FAERS Safety Report 12387257 (Version 1)
Quarter: 2016Q2

REPORT INFORMATION
  Report Type: Not Available
  Country: FR (occurrence: FR)
  Receive Date: 20160519
  Receipt Date: 20160519
  Transmission Date: 20160815
  Serious: Yes (Life-Threatening, Hospitalization)
  Sender: FDA-Public Use
  Company Number: FR-ANIPHARMA-2016-FR-000011

PATIENT
  Age: 6 Month
  Sex: Female

DRUGS (1)
  1. AMITRIPTYLINE (NON-SPECIFIC) [Suspect]
     Active Substance: AMITRIPTYLINE
     Dosage: UNKNOWN
     Route: 065

REACTIONS (8)
  - Underweight [Unknown]
  - Toxicity to various agents [Unknown]
  - Respiratory distress [Unknown]
  - Child maltreatment syndrome [Unknown]
  - Electroencephalogram abnormal [Unknown]
  - Coma [Unknown]
  - Drug administered to patient of inappropriate age [Unknown]
  - Generalised tonic-clonic seizure [Unknown]
